FAERS Safety Report 7818336-0 (Version None)
Quarter: 2011Q4

REPORT INFORMATION
  Report Type: 
  Country: None (occurrence: None)
  Receive Date: 20111017
  Receipt Date: 20111011
  Transmission Date: 20120403
  Serious: Yes (Hospitalization)
  Sender: FDA-Public Use
  Company Number: US-B.I. PHARMACEUTICALS,INC./RIDGEFIELD-2011-BP-17389BP

PATIENT
  Age: 83 Year
  Sex: Male
  Weight: 90.72 kg

DRUGS (5)
  1. LASIX [Concomitant]
     Dosage: 40 MG
  2. METOPROLOL TARTRATE [Concomitant]
     Dosage: 100 MG
  3. PRADAXA [Suspect]
     Indication: ATRIAL FIBRILLATION
     Route: 048
     Dates: start: 20110426, end: 20110518
  4. ASPIRIN [Concomitant]
  5. AMLODIPINE [Concomitant]
     Dosage: 10 MG

REACTIONS (2)
  - RETROPERITONEAL HAEMORRHAGE [None]
  - RENAL HAEMORRHAGE [None]
